FAERS Safety Report 7228938-0 (Version None)
Quarter: 2011Q1

REPORT INFORMATION
  Report Type: 
  Country: None (occurrence: None)
  Receive Date: 20110117
  Receipt Date: 20110105
  Transmission Date: 20110831
  Serious: Yes (Hospitalization)
  Sender: FDA-Public Use
  Company Number: FR-SANOFI-AVENTIS-2011SA000600

PATIENT
  Age: 63 Year
  Sex: Female

DRUGS (15)
  1. ATACAND [Suspect]
     Dosage: 1 DF
     Route: 048
     Dates: end: 20101006
  2. METFORMIN HCL [Suspect]
     Indication: DIABETES MELLITUS
     Dosage: 2 DF
     Route: 048
     Dates: end: 20101006
  3. APIDRA [Suspect]
     Indication: DIABETES MELLITUS
     Route: 058
  4. ATENOLOL [Suspect]
     Indication: HYPERTENSION
     Dosage: 1 DF
     Route: 048
  5. LEXOMIL [Suspect]
     Indication: ANXIETY
     Route: 048
  6. ACETAMINOPHEN [Suspect]
     Dosage: 3 DF
     Route: 048
  7. INDAPAMIDE [Suspect]
     Indication: HYPERTENSION
     Route: 048
     Dates: end: 20101006
  8. EZETROL [Suspect]
     Indication: OBESITY
     Dosage: 1 DF
     Route: 048
  9. NITROGLYCERIN [Suspect]
     Indication: CARDIOMYOPATHY
     Dosage: 1 DF
     Route: 048
  10. INSULIN DETEMIR [Suspect]
     Indication: DIABETES MELLITUS
     Dosage: 2 DF
     Route: 058
  11. LANSOPRAZOLE [Suspect]
     Dosage: 1 DF
     Route: 048
  12. CYMBALTA [Suspect]
     Dosage: 1 DF
     Route: 048
  13. ALPRAZOLAM [Suspect]
     Indication: ANXIETY
     Dosage: 1 DF
     Route: 048
  14. PREVISCAN [Suspect]
     Dosage: 1.5 DF
     Route: 048
     Dates: end: 20101006
  15. GLICLAZIDE [Suspect]
     Indication: DIABETES MELLITUS
     Dosage: 1 DF
     Route: 048
     Dates: end: 20101006

REACTIONS (8)
  - METABOLIC ACIDOSIS [None]
  - PYREXIA [None]
  - GASTROENTERITIS [None]
  - RENAL FAILURE ACUTE [None]
  - ABDOMINAL PAIN [None]
  - ANURIA [None]
  - HYPERKALAEMIA [None]
  - DIARRHOEA [None]
